FAERS Safety Report 8183143-9 (Version None)
Quarter: 2012Q1

REPORT INFORMATION
  Report Type: 
  Country: None (occurrence: None)
  Receive Date: 20120201
  Receipt Date: 20110506
  Transmission Date: 20120608
  Serious: Yes (Hospitalization)
  Sender: FDA-Public Use
  Company Number: WAES 1105USA01310

PATIENT

DRUGS (1)
  1. PRIMAXIN [Suspect]
     Indication: LIVER ABSCESS
     Dosage: IV
     Route: 042

REACTIONS (1)
  - ANAEMIA [None]
